FAERS Safety Report 21974844 (Version 2)
Quarter: 2023Q1

REPORT INFORMATION
  Report Type: Spontaneous
  Country: PT (occurrence: PT)
  Receive Date: 20230209
  Receipt Date: 20230316
  Transmission Date: 20230418
  Serious: Yes (Hospitalization)
  Sender: FDA-Public Use
  Company Number: PT-TEVA-2023-PT-2851854

PATIENT
  Age: 75 Year
  Sex: Female

DRUGS (1)
  1. HYDROCHLOROTHIAZIDE\OLMESARTAN MEDOXOMIL [Suspect]
     Active Substance: HYDROCHLOROTHIAZIDE\OLMESARTAN MEDOXOMIL
     Indication: Hypertension
     Route: 065

REACTIONS (1)
  - Gastrointestinal disorder [Recovered/Resolved]
